FAERS Safety Report 13765716 (Version 2)
Quarter: 2017Q3

REPORT INFORMATION
  Report Type: Spontaneous
  Country: BR (occurrence: BR)
  Receive Date: 20170718
  Receipt Date: 20170810
  Transmission Date: 20171127
  Serious: Yes (Hospitalization, Other)
  Sender: FDA-Public Use
  Company Number: BR-B.I. PHARMACEUTICALS,INC./RIDGEFIELD-2017-BI-040650

PATIENT
  Age: 54 Year
  Sex: Male
  Weight: 98 kg

DRUGS (2)
  1. ATORVASTATINA [Concomitant]
     Active Substance: ATORVASTATIN
     Indication: PRODUCT USED FOR UNKNOWN INDICATION
     Route: 065
  2. MICARDIS [Suspect]
     Active Substance: TELMISARTAN
     Indication: HYPERTENSION
     Route: 065

REACTIONS (5)
  - Aortic occlusion [Recovered/Resolved]
  - Dyspnoea [Recovered/Resolved]
  - Cold sweat [Recovered/Resolved]
  - Chest pain [Recovered/Resolved]
  - Coronary artery occlusion [Recovered/Resolved]
